FAERS Safety Report 14667634 (Version 3)
Quarter: 2018Q3

REPORT INFORMATION
  Report Type: Spontaneous
  Country: US (occurrence: US)
  Receive Date: 20180322
  Receipt Date: 20180907
  Transmission Date: 20181010
  Serious: Yes (Hospitalization)
  Sender: FDA-Public Use
  Company Number: US-PFIZER INC-2018112581

PATIENT
  Age: 74 Year
  Sex: Female
  Weight: 85.28 kg

DRUGS (2)
  1. IBRANCE [Suspect]
     Active Substance: PALBOCICLIB
     Dosage: 100 MG, 1X/DAY
     Route: 048
     Dates: start: 2018
  2. IBRANCE [Suspect]
     Active Substance: PALBOCICLIB
     Indication: NEOPLASM MALIGNANT
     Dosage: 125 MG, 1X/DAY
     Route: 048
     Dates: start: 2015

REACTIONS (8)
  - White blood cell count abnormal [Unknown]
  - Emotional disorder [Unknown]
  - Heart rate increased [Recovered/Resolved]
  - Stenosis [Unknown]
  - Sciatica [Unknown]
  - Sleep disorder [Unknown]
  - Malaise [Unknown]
  - Dyspnoea [Recovered/Resolved]

NARRATIVE: CASE EVENT DATE: 20180830
